FAERS Safety Report 15667402 (Version 1)
Quarter: 2018Q4

REPORT INFORMATION
  Report Type: Spontaneous
  Country: US (occurrence: US)
  Receive Date: 20181128
  Receipt Date: 20181128
  Transmission Date: 20190205
  Serious: Yes (Hospitalization)
  Sender: FDA-Public Use
  Company Number: US-PFIZER INC-2018488673

PATIENT
  Age: 56 Year
  Sex: Male
  Weight: 113.38 kg

DRUGS (1)
  1. BOSULIF [Suspect]
     Active Substance: BOSUTINIB MONOHYDRATE
     Indication: CHRONIC MYELOID LEUKAEMIA
     Dosage: 100 MG, DAILY (INCREASING DOSE BY 100 MG EACH WEEK UNTIL TARGET DOSE 400 MG DAILY)
     Route: 048
     Dates: start: 201702

REACTIONS (2)
  - Hepatic enzyme increased [Unknown]
  - Pancreatic enzymes increased [Unknown]

NARRATIVE: CASE EVENT DATE: 201809
